FAERS Safety Report 9628431 (Version 3)
Quarter: 2013Q4

REPORT INFORMATION
  Report Type: Spontaneous
  Country: US (occurrence: US)
  Receive Date: 20131017
  Receipt Date: 20131120
  Transmission Date: 20140711
  Serious: No
  Sender: FDA-Public Use
  Company Number: US-PFIZER INC-2013293169

PATIENT
  Age: 62 Year
  Sex: Female

DRUGS (8)
  1. ZITHROMAX [Suspect]
     Dosage: UNK
  2. CLINDAMYCIN HCL [Suspect]
     Dosage: UNK
  3. LISINOPRIL [Suspect]
     Dosage: UNK
  4. DOXYCYCLINE [Suspect]
     Dosage: UNK
  5. VANCOMYCIN HCL [Suspect]
     Dosage: UNK
  6. AMPICILLIN [Suspect]
     Dosage: UNK
  7. LINCOMYCIN HCL [Suspect]
     Dosage: UNK
  8. PERCODAN [Suspect]
     Dosage: UNK

REACTIONS (1)
  - Drug hypersensitivity [Unknown]
